FAERS Safety Report 8584749-5 (Version None)
Quarter: 2012Q3

REPORT INFORMATION
  Report Type: 
  Country: None (occurrence: None)
  Receive Date: 20120810
  Receipt Date: 20120731
  Transmission Date: 20120928
  Serious: Yes (Hospitalization, Disabling, Other)
  Sender: FDA-Public Use
  Company Number: US-009507513-1112USA00797

PATIENT

DRUGS (8)
  1. FOSAMAX [Suspect]
     Indication: OSTEOPOROSIS PROPHYLAXIS
     Dosage: 70 MG, QW
     Route: 048
     Dates: start: 20080527
  2. ALENDRONATE SODIUM [Suspect]
     Indication: OSTEOPOROSIS
     Dates: start: 20080201, end: 20080101
  3. ALENDRONATE SODIUM [Suspect]
     Indication: OSTEOPOROSIS PROPHYLAXIS
  4. FOSAMAX [Suspect]
  5. MK-9278 [Concomitant]
  6. LEVOTIROXINA S.O [Concomitant]
     Indication: HYPOTHYROIDISM
  7. FOSAMAX [Suspect]
     Indication: OSTEOPOROSIS
     Dosage: UNK
     Route: 048
     Dates: start: 19950101, end: 20080101
  8. FOSAMAX [Suspect]
     Route: 048
     Dates: start: 20080201, end: 20080101

REACTIONS (8)
  - LOW TURNOVER OSTEOPATHY [None]
  - FALL [None]
  - OSTEOMALACIA [None]
  - SPINAL OSTEOARTHRITIS [None]
  - OSTEOARTHRITIS [None]
  - HAEMORRHAGIC ANAEMIA [None]
  - THYROID CYST [None]
  - FEMUR FRACTURE [None]
